FAERS Safety Report 9608832 (Version 1)
Quarter: 2013Q4

REPORT INFORMATION
  Report Type: Spontaneous
  Country: FR (occurrence: None)
  Receive Date: 20131007
  Receipt Date: 20131007
  Transmission Date: 20140711
  Serious: Yes (Other)
  Sender: FDA-Public Use
  Company Number: 2013R1-73760

PATIENT
  Age: 41 Year
  Sex: Male

DRUGS (1)
  1. AMOXICICLLINE (AMOXICILLIN) UNKNOWN [Suspect]
     Indication: PRODUCT USED FOR UNKNOWN INDICATION

REACTIONS (3)
  - Drug reaction with eosinophilia and systemic symptoms [None]
  - Epstein-Barr virus infection [None]
  - Human herpesvirus 6 infection [None]
